FAERS Safety Report 5788517-9 (Version None)
Quarter: 2008Q2

REPORT INFORMATION
  Report Type: 
  Country: None (occurrence: None)
  Receive Date: 20080618
  Receipt Date: 20080214
  Transmission Date: 20081010
  Serious: Yes (Other)
  Sender: FDA-Public Use
  Company Number: 200810372US

PATIENT
  Age: 67 Year
  Sex: Female
  Weight: 83.46 kg

DRUGS (13)
  1. LANTUS [Suspect]
     Indication: TYPE 2 DIABETES MELLITUS
     Dosage: 50 U QPM INJ
     Dates: start: 20040101
  2. HUMALOG [Concomitant]
  3. ATENOLOL [Concomitant]
  4. ESOMEPRAZOLE [Concomitant]
  5. VALSARTAN (DIOVANE) [Concomitant]
  6. AMLODIPINE (NORVASC /00972401/) [Concomitant]
  7. ETODOLAC (LODINE) [Concomitant]
  8. TRAMADOL HCL [Concomitant]
  9. CALCIUM [Concomitant]
  10. MAXZIDE [Concomitant]
  11. SYNTHROID [Concomitant]
  12. COLESTIPOL HYDROCHLORIDE (COLESTID) [Concomitant]
  13. MULTI-VITAMIN [Concomitant]

REACTIONS (6)
  - BLOOD GLUCOSE INCREASED [None]
  - DIZZINESS [None]
  - HYPERHIDROSIS [None]
  - HYPOGLYCAEMIA [None]
  - INJECTION SITE PAIN [None]
  - PALPITATIONS [None]
